FAERS Safety Report 18976000 (Version 1)
Quarter: 2021Q1

REPORT INFORMATION
  Report Type: Other
  Country: AU (occurrence: AU)
  Receive Date: 20210305
  Receipt Date: 20210305
  Transmission Date: 20210420
  Serious: Yes (Hospitalization)
  Sender: FDA-Public Use
  Company Number: AU-B.BRAUN MEDICAL INC.-2107639

PATIENT
  Age: 75 Year
  Sex: Female

DRUGS (1)
  1. IV ACETAMINOPHEN ? NDA 204957 [Suspect]
     Active Substance: ACETAMINOPHEN
     Indication: PAIN MANAGEMENT

REACTIONS (2)
  - Pyroglutamic acidosis [None]
  - Metabolic acidosis [None]
